FAERS Safety Report 6649807-0 (Version None)
Quarter: 2010Q1

REPORT INFORMATION
  Report Type: 
  Country: None (occurrence: None)
  Receive Date: 20100322
  Receipt Date: 20100310
  Transmission Date: 20100710
  Serious: Yes (Hospitalization)
  Sender: FDA-Public Use
  Company Number: A-US2009-30095

PATIENT
  Age: 49 Year
  Sex: Male

DRUGS (1)
  1. TRACLEER [Suspect]
     Indication: PULMONARY ARTERIAL HYPERTENSION
     Dosage: 62.5 MG, BID, ORAL
     Route: 048
     Dates: start: 20091027, end: 20091102

REACTIONS (4)
  - DYSPNOEA [None]
  - HEPATIC ENZYME INCREASED [None]
  - HYPOVOLAEMIA [None]
  - OFF LABEL USE [None]
